FAERS Safety Report 21510079 (Version 3)
Quarter: 2022Q4

REPORT INFORMATION
  Report Type: Spontaneous
  Country: US (occurrence: US)
  Receive Date: 20221026
  Receipt Date: 20221218
  Transmission Date: 20230113
  Serious: Yes (Other)
  Sender: FDA-Public Use
  Company Number: US-BIOGEN-2022BI01163391

PATIENT
  Age: 59 Year
  Sex: Female

DRUGS (3)
  1. TECFIDERA [Suspect]
     Active Substance: DIMETHYL FUMARATE
     Indication: Multiple sclerosis
     Route: 050
     Dates: start: 20160128, end: 20221017
  2. Covid vaccine [Concomitant]
     Indication: COVID-19 prophylaxis
     Route: 050
  3. KESIMPTA [Concomitant]
     Active Substance: OFATUMUMAB
     Indication: Product used for unknown indication
     Route: 050

REACTIONS (9)
  - Lymphocyte count decreased [Unknown]
  - Mobility decreased [Unknown]
  - Muscle spasticity [Unknown]
  - Hypoaesthesia [Unknown]
  - Contusion [Unknown]
  - Arthralgia [Unknown]
  - Cataract [Unknown]
  - COVID-19 [Unknown]
  - Eye infection [Unknown]

NARRATIVE: CASE EVENT DATE: 20220501
